FAERS Safety Report 8917211 (Version 1)
Quarter: 2012Q4

REPORT INFORMATION
  Report Type: 
  Country: ID (occurrence: ID)
  Receive Date: 20121120
  Receipt Date: 20121120
  Transmission Date: 20130627
  Serious: Yes (Death, Hospitalization)
  Sender: FDA-Public Use
  Company Number: PHHY2012ID105167

PATIENT
  Sex: Female

DRUGS (2)
  1. GLIVEC [Suspect]
     Indication: GASTROINTESTINAL STROMAL TUMOUR
     Dosage: 200 x 4 times a day
     Route: 048
     Dates: start: 201204, end: 20121112
  2. CHEMOTHERAPEUTICS [Concomitant]

REACTIONS (6)
  - Neoplasm progression [Fatal]
  - Malignant neoplasm progression [Fatal]
  - Abdominal pain [Fatal]
  - Dyspnoea [Fatal]
  - Oedema peripheral [Unknown]
  - Abdominal distension [Unknown]
